FAERS Safety Report 6520667-1 (Version None)
Quarter: 2009Q4

REPORT INFORMATION
  Report Type: 
  Country: None (occurrence: None)
  Receive Date: 20091229
  Receipt Date: 20091218
  Transmission Date: 20100525
  Serious: Yes (Hospitalization)
  Sender: FDA-Public Use
  Company Number: GR-CUBIST-2009S1000576

PATIENT
  Age: 78 Year
  Sex: Male

DRUGS (5)
  1. CUBICIN [Suspect]
     Indication: ENDOCARDITIS
     Route: 042
  2. AMPICILLIN [Concomitant]
     Indication: ENDOCARDITIS
  3. AMPICILLIN [Concomitant]
     Indication: OFF LABEL USE
  4. GENTAMICIN [Concomitant]
     Indication: ENDOCARDITIS
  5. DIURETICS [Concomitant]
     Indication: ENDOCARDITIS

REACTIONS (1)
  - ORGANISING PNEUMONIA [None]
